FAERS Safety Report 11452039 (Version 1)
Quarter: 2015Q3

REPORT INFORMATION
  Report Type: Spontaneous
  Country: None (occurrence: None)
  Receive Date: 20150902
  Receipt Date: 20150902
  Transmission Date: 20151125
  Serious: No
  Sender: FDA-Public Use
  Company Number: None

PATIENT
  Age: 42 Year
  Sex: Female
  Weight: 103.42 kg

DRUGS (8)
  1. VICTOZA [Suspect]
     Active Substance: LIRAGLUTIDE
     Indication: BLOOD GLUCOSE INCREASED
     Dosage: 1.2 GIVEN INTO/UNDER THE SKIN
     Dates: start: 20150822, end: 20150831
  2. NATURAL MADE VITAMINC [Concomitant]
  3. ISAGENIX WOMEN^T VITAMINS [Concomitant]
  4. JUNOVIA [Concomitant]
  5. GLIMPERIDE [Concomitant]
  6. ISAGENIX [Concomitant]
  7. METFORMIN [Concomitant]
     Active Substance: METFORMIN HYDROCHLORIDE
  8. LOSARTAN. [Concomitant]
     Active Substance: LOSARTAN

REACTIONS (3)
  - Flatulence [None]
  - Vomiting [None]
  - Diarrhoea [None]

NARRATIVE: CASE EVENT DATE: 20150831
